FAERS Safety Report 4866209-8 (Version None)
Quarter: 2005Q4

REPORT INFORMATION
  Report Type: 
  Country: None (occurrence: None)
  Receive Date: 20051221
  Receipt Date: 20051213
  Transmission Date: 20060501
  Serious: Yes (Death, Hospitalization)
  Sender: FDA-Public Use
  Company Number: 163-20785-05010538

PATIENT
  Age: 75 Year
  Sex: Female

DRUGS (16)
  1. THALOMID [Suspect]
     Indication: MULTIPLE MYELOMA
     Dosage: SEE IMAGE
     Route: 048
     Dates: start: 20041203, end: 20050101
  2. THALOMID [Suspect]
     Indication: MULTIPLE MYELOMA
     Dosage: SEE IMAGE
     Route: 048
     Dates: start: 20050101, end: 20050401
  3. THALOMID [Suspect]
     Indication: MULTIPLE MYELOMA
     Dosage: SEE IMAGE
     Route: 048
     Dates: start: 20050401, end: 20050716
  4. XANAX [Suspect]
     Indication: DRUG USE FOR UNKNOWN INDICATION
     Dosage: 0.25 MG TWICE A DAY
     Dates: end: 20050721
  5. METHYLDOPA [Concomitant]
  6. ATENOLOL [Concomitant]
  7. NIACIN [Concomitant]
  8. CALTRATE (CALCIUM CARBONATE) [Concomitant]
  9. IRON (IRON) [Concomitant]
  10. VITAMIN B12 [Concomitant]
  11. VITAMIN E [Concomitant]
  12. ASPIRIN (ACDTYLSALICYLIC ACID) [Concomitant]
  13. NEXIUM [Concomitant]
  14. LASIX [Concomitant]
  15. POTASSIUM CHLORIDE [Concomitant]
  16. FLOVENT [Concomitant]

REACTIONS (14)
  - BRAIN NATRIURETIC PEPTIDE INCREASED [None]
  - CARDIAC FAILURE CONGESTIVE [None]
  - CEREBROVASCULAR ACCIDENT [None]
  - CHRONIC OBSTRUCTIVE PULMONARY DISEASE [None]
  - CONTUSION [None]
  - DEHYDRATION [None]
  - DISEASE PROGRESSION [None]
  - FALL [None]
  - FLUID OVERLOAD [None]
  - LACERATION [None]
  - RALES [None]
  - RENAL FAILURE ACUTE [None]
  - RESPIRATORY DISTRESS [None]
  - SOMNOLENCE [None]
